FAERS Safety Report 22017666 (Version 2)
Quarter: 2023Q1

REPORT INFORMATION
  Report Type: Spontaneous
  Country: FR (occurrence: FR)
  Receive Date: 20230221
  Receipt Date: 20230228
  Transmission Date: 20230418
  Serious: Yes (Hospitalization)
  Sender: FDA-Public Use
  Company Number: None

PATIENT
  Age: 3 Year
  Sex: Male
  Weight: 15 kg

DRUGS (5)
  1. ABILIFY [Suspect]
     Active Substance: ARIPIPRAZOLE
     Indication: Accidental exposure to product by child
     Dosage: 3 DF, QD (3 TABLETS- TOTAL 15 MG)
     Route: 048
     Dates: start: 20221020, end: 20221020
  2. ESCITALOPRAM OXALATE [Suspect]
     Active Substance: ESCITALOPRAM OXALATE
     Indication: Accidental exposure to product by child
     Dosage: 2 DF, QD
     Route: 048
     Dates: start: 20221020, end: 20221020
  3. OXAZEPAM [Suspect]
     Active Substance: OXAZEPAM
     Indication: Accidental exposure to product by child
     Dosage: 10 DF, QD
     Route: 048
     Dates: start: 20221020, end: 20221020
  4. ALBUTEROL SULFATE [Concomitant]
     Active Substance: ALBUTEROL SULFATE
     Indication: Asthma
     Dosage: 1 DF (100 UG/DOSE, IN THE LONG TERM)
     Route: 055
  5. BECLOMETHASONE DIPROPIONATE [Concomitant]
     Active Substance: BECLOMETHASONE DIPROPIONATE
     Indication: Asthma
     Dosage: 1 DF, BID (250 UG/DOSE, SOLUTION FOR INHALATION IN PRESSURIZED VIAL)
     Route: 055

REACTIONS (3)
  - Hypotonia [Recovered/Resolved]
  - Somnolence [Recovered/Resolved]
  - Accidental exposure to product by child [Unknown]

NARRATIVE: CASE EVENT DATE: 20221020
